FAERS Safety Report 10842057 (Version 1)
Quarter: 2015Q1

REPORT INFORMATION
  Report Type: Report from Study
  Country: US (occurrence: US)
  Receive Date: 20150220
  Receipt Date: 20150220
  Transmission Date: 20150721
  Serious: No
  Sender: FDA-Public Use
  Company Number: US-ABBVIE-14P-163-1266003-00

PATIENT
  Age: 28 Year
  Sex: Female
  Weight: 61.29 kg

DRUGS (6)
  1. TRI-SPRINTEC [Concomitant]
     Active Substance: ETHINYL ESTRADIOL\NORGESTIMATE
     Indication: CONTRACEPTION
  2. MYCOPHENOLATE MOFETIL. [Concomitant]
     Active Substance: MYCOPHENOLATE MOFETIL
     Indication: IMMUNOSUPPRESSION
     Dosage: 2000 MG QD
  3. METHOTREXATE [Concomitant]
     Active Substance: METHOTREXATE
     Indication: DERMATOMYOSITIS
     Dates: start: 201405
  4. MULTIVITAMIN [Concomitant]
     Active Substance: VITAMINS
     Indication: PRODUCT USED FOR UNKNOWN INDICATION
  5. HUMIRA [Suspect]
     Active Substance: ADALIMUMAB
     Indication: DERMATOMYOSITIS
     Dates: end: 201311
  6. HUMIRA [Suspect]
     Active Substance: ADALIMUMAB
     Dates: start: 20140605

REACTIONS (8)
  - Dermatomyositis [Not Recovered/Not Resolved]
  - Scab [Not Recovered/Not Resolved]
  - Alopecia [Not Recovered/Not Resolved]
  - Dermatitis psoriasiform [Not Recovered/Not Resolved]
  - Bacterial infection [Not Recovered/Not Resolved]
  - Papule [Not Recovered/Not Resolved]
  - Nail pitting [Not Recovered/Not Resolved]
  - Psoriasis [Unknown]

NARRATIVE: CASE EVENT DATE: 201212
